FAERS Safety Report 4337384-9 (Version None)
Quarter: 2004Q2

REPORT INFORMATION
  Report Type: 
  Country: None (occurrence: None)
  Receive Date: 20040408
  Receipt Date: 20040326
  Transmission Date: 20050107
  Serious: Yes (Hospitalization, Other)
  Sender: FDA-Public Use
  Company Number: 2004021160

PATIENT
  Sex: Female

DRUGS (6)
  1. ZOLOFT [Suspect]
     Indication: ANXIETY DISORDER
     Dosage: ORAL
     Route: 048
     Dates: start: 20000501
  2. LEVAXIN (LEVOTHYROXINE SODIUM) [Concomitant]
  3. SOBRIL (OXAZEPAM) [Concomitant]
  4. TRISEKVENS (ESTRADIOL, ESTRIOL, NORETHISTERONE ACETATE) [Concomitant]
  5. URSODEOXYCHOLIC ACID (URSODEOXYCHOLIC ACID) [Concomitant]
  6. PHYTONADIONE [Concomitant]

REACTIONS (20)
  - ABDOMINAL DISTENSION [None]
  - ANXIETY [None]
  - BLOOD ALBUMIN DECREASED [None]
  - BLOOD BILIRUBIN INCREASED [None]
  - CHOLANGITIS SCLEROSING [None]
  - DRY SKIN [None]
  - DYSPEPSIA [None]
  - DYSPNOEA [None]
  - FAECES HARD [None]
  - FATIGUE [None]
  - FLATULENCE [None]
  - HEADACHE [None]
  - JOINT SWELLING [None]
  - LIVER DISORDER [None]
  - LIVER FUNCTION TEST ABNORMAL [None]
  - LOOSE STOOLS [None]
  - MUCOSAL DRYNESS [None]
  - OEDEMA PERIPHERAL [None]
  - PAIN [None]
  - PRURITUS [None]
